FAERS Safety Report 7829834-8 (Version None)
Quarter: 2011Q4

REPORT INFORMATION
  Report Type: 
  Country: None (occurrence: None)
  Receive Date: 20111019
  Receipt Date: 20111011
  Transmission Date: 20120403
  Serious: Yes (Hospitalization)
  Sender: FDA-Public Use
  Company Number: 1000024046

PATIENT
  Age: 77 Year
  Sex: Female
  Weight: 72.3 kg

DRUGS (4)
  1. CRIZOTINIB (CRIZOTINIB) [Suspect]
     Indication: LUNG NEOPLASM MALIGNANT
     Dosage: 250 MG (250 MG, 2 IN 1 D), ORAL
     Route: 048
     Dates: start: 20110602, end: 20110622
  2. VALSARTAN [Suspect]
     Indication: HYPERTENSION
     Dosage: 320 MG (160 MG, 2 IN 1 D), ORAL
     Route: 048
     Dates: start: 20090101, end: 20110621
  3. TORSEMIDE [Suspect]
     Indication: HYPERTENSION
     Dosage: 10 MG (10 MG, 1 IN 1 D), ORAL
     Route: 048
     Dates: start: 20090101, end: 20110621
  4. BYSTOLIC [Suspect]
     Indication: HYPERTENSION
     Dosage: 5 MG (5 MG, 1 IN 1 D), ORAL
     Route: 048
     Dates: start: 20110602, end: 20110621

REACTIONS (16)
  - RENAL FAILURE ACUTE [None]
  - URINARY CASTS PRESENT [None]
  - ALANINE AMINOTRANSFERASE INCREASED [None]
  - BLOOD URIC ACID INCREASED [None]
  - WHITE BLOOD CELLS URINE POSITIVE [None]
  - ATRIAL FIBRILLATION [None]
  - BACTERIAL TEST POSITIVE [None]
  - BLOOD LACTATE DEHYDROGENASE INCREASED [None]
  - ASPARTATE AMINOTRANSFERASE INCREASED [None]
  - HEART RATE DECREASED [None]
  - RESPIRATORY RATE INCREASED [None]
  - URINE ANALYSIS ABNORMAL [None]
  - BLADDER DILATATION [None]
  - BLOOD GLUCOSE INCREASED [None]
  - BODY TEMPERATURE DECREASED [None]
  - RED BLOOD CELLS URINE POSITIVE [None]
